FAERS Safety Report 13836084 (Version 1)
Quarter: 2017Q3

REPORT INFORMATION
  Report Type: Spontaneous
  Country: US (occurrence: US)
  Receive Date: 20170804
  Receipt Date: 20170804
  Transmission Date: 20171127
  Serious: No
  Sender: FDA-Public Use
  Company Number: US-PERRIGO-17US024387

PATIENT
  Age: 42 Year
  Sex: Female
  Weight: 68.27 kg

DRUGS (2)
  1. OXYCODONE [Concomitant]
     Active Substance: OXYCODONE
     Indication: PAIN
     Dosage: UNK
     Route: 065
  2. MOTRIN IB [Suspect]
     Active Substance: IBUPROFEN
     Indication: INFLAMMATION
     Dosage: 800 MG, 1 TO 2 TIMES DAILY
     Route: 048
     Dates: start: 201706

REACTIONS (2)
  - Drug ineffective [Unknown]
  - Incorrect dose administered [Not Recovered/Not Resolved]

NARRATIVE: CASE EVENT DATE: 201706
